FAERS Safety Report 18055386 (Version 5)
Quarter: 2020Q3

REPORT INFORMATION
  Report Type: Not Available
  Country: US (occurrence: US)
  Receive Date: 20200722
  Receipt Date: 20200925
  Transmission Date: 20201103
  Serious: Yes (Hospitalization)
  Sender: FDA-Public Use
  Company Number: US-NEUROCRINE BIOSCIENCES INC.-2020NBI02511

PATIENT
  Age: 55 Year
  Sex: Female

DRUGS (35)
  1. PANADOL [Concomitant]
     Active Substance: ACETAMINOPHEN
     Dosage: NOT TO EXCEED 3 TABLETS IN 24 HOURS
  2. DEMADEX [Concomitant]
     Active Substance: TORSEMIDE
     Dosage: EVERY MORNING ON MONDAY, WEDNESDAY  AND FRIDAY
  3. ENTRESTO [Concomitant]
     Active Substance: SACUBITRIL\VALSARTAN
     Dosage: AMLODIPINE + HCTZ 24MG /26 MG
  4. LAMOTRIGINE. [Concomitant]
     Active Substance: LAMOTRIGINE
  5. QUETIAPINE. [Concomitant]
     Active Substance: QUETIAPINE
  6. NICODERM CQ [Concomitant]
     Active Substance: NICOTINE
  7. NITROGLYCERINE [Concomitant]
     Active Substance: NITROGLYCERIN
     Indication: CHEST PAIN
  8. ASPIRIN. [Concomitant]
     Active Substance: ASPIRIN
  9. TESSALON [Concomitant]
     Active Substance: BENZONATATE
  10. DOXYCYCLINE. [Concomitant]
     Active Substance: DOXYCYCLINE
  11. DUONEB [Concomitant]
     Active Substance: ALBUTEROL SULFATE\IPRATROPIUM BROMIDE
     Dosage: 3 MG/3 ML EVERY 4 HOUR
  12. LACTULOSE. [Concomitant]
     Active Substance: LACTULOSE
     Dosage: 10 MG/15 ML
  13. MICONAZOLE. [Concomitant]
     Active Substance: MICONAZOLE
  14. MIRALAX [Concomitant]
     Active Substance: POLYETHYLENE GLYCOL 3350
     Dosage: EVERY MORNING
  15. VENLAFAXINE [Concomitant]
     Active Substance: VENLAFAXINE HYDROCHLORIDE
  16. WARFARIN [Concomitant]
     Active Substance: WARFARIN
     Dosage: DOSE VARIES
  17. TRAZODONE [Concomitant]
     Active Substance: TRAZODONE HYDROCHLORIDE
     Dosage: AT BEDTIME
  18. ATORVASTATIN [Concomitant]
     Active Substance: ATORVASTATIN
     Dosage: AT BEDTIME
  19. CLARITIN [Concomitant]
     Active Substance: LORATADINE
     Dosage: AT BEDTIME
  20. FERROUS SULFATE. [Concomitant]
     Active Substance: FERROUS SULFATE
  21. LEVOFLOXACIN. [Concomitant]
     Active Substance: LEVOFLOXACIN
  22. PROAIR HFA [Concomitant]
     Active Substance: ALBUTEROL SULFATE
     Dosage: 2 PUFFS EVERY 4 HOUR
  23. SPIRONOLACTONE. [Concomitant]
     Active Substance: SPIRONOLACTONE
     Dosage: IN MORNING
  24. FLUTICASONE. [Concomitant]
     Active Substance: FLUTICASONE
     Dosage: 1 SPRAY EACH NOSTRIL
  25. HYDROXYZINE PAMOATE. [Concomitant]
     Active Substance: HYDROXYZINE PAMOATE
  26. JARDIANCE [Concomitant]
     Active Substance: EMPAGLIFLOZIN
     Dosage: EVERY MORNING
  27. MELATONIN [Concomitant]
     Active Substance: MELATONIN
  28. METOPROLOL XL [Concomitant]
     Active Substance: METOPROLOL SUCCINATE
  29. VITAMIN K [Concomitant]
     Active Substance: PHYTONADIONE
     Dosage: IN MORNING
  30. INGREZZA [Suspect]
     Active Substance: VALBENAZINE
     Indication: TARDIVE DYSKINESIA
     Dosage: AT BEDTIME
     Route: 048
     Dates: start: 20171227
  31. DEMADEX [Concomitant]
     Active Substance: TORSEMIDE
     Dosage: EVERY MORNING ON TUESDAY, THURSDAY + SATURDAY
  32. FAMOTIDINE. [Concomitant]
     Active Substance: FAMOTIDINE
  33. METFORMIN [Concomitant]
     Active Substance: METFORMIN HYDROCHLORIDE
  34. GABAPENTIN. [Concomitant]
     Active Substance: GABAPENTIN
  35. OMEPRAZOLE DR [Concomitant]
     Active Substance: OMEPRAZOLE

REACTIONS (4)
  - Pericardial effusion [Unknown]
  - Pulmonary oedema [Unknown]
  - Abnormal behaviour [Unknown]
  - Epistaxis [Unknown]

NARRATIVE: CASE EVENT DATE: 202007
